FAERS Safety Report 17939982 (Version 1)
Quarter: 2020Q2

REPORT INFORMATION
  Report Type: Spontaneous
  Country: FR (occurrence: FR)
  Receive Date: 20200625
  Receipt Date: 20200625
  Transmission Date: 20200714
  Serious: Yes (Other)
  Sender: FDA-Public Use
  Company Number: FR-SA-2019SA053987

PATIENT

DRUGS (31)
  1. ENOXAPARIN SODIUM. [Suspect]
     Active Substance: ENOXAPARIN SODIUM
     Indication: PRODUCT USED FOR UNKNOWN INDICATION
     Dosage: 4000 IU, BID
     Dates: start: 2017
  2. SODIUM CHLORIDE. [Suspect]
     Active Substance: SODIUM CHLORIDE
     Dosage: 20 ML VIA SYRINGE WITH VINBLASTINE, CYCLE DURATION 28 DAYS, TIMING: J15
     Route: 042
  3. DOXORUBICIN [Suspect]
     Active Substance: DOXORUBICIN
     Indication: HODGKIN^S DISEASE
     Dosage: 48MG, UNK, 1 AND 15 DAY OF 28 DAY CYCLE. (25 MG/M2)48 MG, UNK, 1 AND 15 DAY OF 28 DAY CYCLE. (25 MG/
     Route: 042
     Dates: start: 20171108
  4. BLEOMYCIN [Suspect]
     Active Substance: BLEOMYCIN SULFATE
     Indication: HODGKIN^S DISEASE
     Dosage: 19.2 MG, QOW, 1 AND 15 DAY OF 28 DAY CYCLE
     Route: 042
     Dates: start: 20171108
  5. DACARBAZINE. [Suspect]
     Active Substance: DACARBAZINE
     Indication: HODGKIN^S DISEASE
     Dosage: 730 MG, QOW, DAY 1 AND 15 OF A 28 DAY CYCLE, INFUSION
     Route: 041
     Dates: start: 20171108
  6. LANSOPRAZOLE. [Suspect]
     Active Substance: LANSOPRAZOLE
     Indication: PRODUCT USED FOR UNKNOWN INDICATION
     Dosage: 30 MG, QD
     Route: 048
     Dates: start: 2017
  7. VINBLASTINE [Suspect]
     Active Substance: VINBLASTINE
     Dosage: 10 MG, 1 AND 15 DAY OF 28 DAY CYCLE
     Route: 042
     Dates: start: 2017
  8. VALACICLOVIR [Suspect]
     Active Substance: VALACYCLOVIR HYDROCHLORIDE
     Indication: PRODUCT USED FOR UNKNOWN INDICATION
     Dosage: 500 MG, QD
     Route: 048
     Dates: start: 2017
  9. SODIUM CHLORIDE. [Suspect]
     Active Substance: SODIUM CHLORIDE
     Dosage: 20 ML VIA SYRINGE WITH VINBLASTINE, CYCLE DURATION 28 DAYS, TIMING:J1
     Route: 042
     Dates: start: 20171108
  10. CORTICOSTEROID NOS [Suspect]
     Active Substance: CORTICOSTEROID NOS
     Indication: MATERNAL THERAPY TO ENHANCE FOETAL LUNG MATURITY
     Dosage: UNK
     Dates: start: 2017
  11. BLEOMYCIN [Suspect]
     Active Substance: BLEOMYCIN SULFATE
     Dosage: 10 MG/M2, UNK, 1 AND 15 DAY OF 28 DAY CYCLE
     Route: 042
     Dates: start: 2017
  12. ONDANSETRON [Suspect]
     Active Substance: ONDANSETRON
     Indication: VOMITING
     Dosage: 8 MG, BID; DAY 1 AND 15 OF A 28 DAY CYCLE,
     Route: 042
     Dates: start: 20171108
  13. DEXAMETHASONE SALT NOT SPECIFIED [Suspect]
     Active Substance: DEXAMETHASONE
     Indication: VOMITING
     Dosage: 10 MG, DAY 1 AND 15 OF A 28 DAY CYCLE
     Route: 048
     Dates: start: 20171108
  14. DACARBAZINE. [Suspect]
     Active Substance: DACARBAZINE
     Dosage: 375 MG/M2, QOW, DAY 1 AND 15 OF A 28 DAY CYCLE, INFUSION
     Route: 041
     Dates: start: 20171108
  15. DACARBAZINE. [Suspect]
     Active Substance: DACARBAZINE
     Dosage: 375 MG/M2, QOW, DAY 1 AND 15 OF A 28 DAY CYCLE, INFUSION
     Route: 041
     Dates: start: 2017
  16. GLUCOSE [Suspect]
     Active Substance: DEXTROSE
     Indication: PRODUCT USED FOR UNKNOWN INDICATION
     Dosage: 5%  20 ML, QCY AS VEHICLE FOR DOXORUBICIN; 28 DAY CYCLE VIA SYRINGE; DURATION 5 MINS; CYCLE DURATION
     Route: 042
     Dates: start: 20171108
  17. GLUCOSE [Suspect]
     Active Substance: DEXTROSE
     Dosage: 5%  250 ML, QCY AS VEHICLE FOR DACARBAZINE; 28 DAY CYCLE VIA SYRINGE; DURATION 5 MINS; CYCLE DURATIO
     Route: 042
     Dates: start: 20171108
  18. ONDANSETRON [Suspect]
     Active Substance: ONDANSETRON
     Dosage: 8 MG, BID; DAY 1 AND 15 OF A 28 DAY CYCLE,
     Route: 042
     Dates: start: 2017
  19. PREDNISONE. [Suspect]
     Active Substance: PREDNISONE
     Dosage: 40 MG, QD
  20. DEXAMETHASONE SALT NOT SPECIFIED [Suspect]
     Active Substance: DEXAMETHASONE
     Dosage: 10 MG, DAY 1 AND 15 OF A 28 DAY CYCLE
     Route: 042
     Dates: start: 2017
  21. VINBLASTINE [Suspect]
     Active Substance: VINBLASTINE
     Indication: HODGKIN^S DISEASE
     Dosage: 10 MG, 1 AND 15 DAY OF 28 DAY CYCLE
     Route: 042
     Dates: start: 20171108
  22. DOXORUBICIN [Suspect]
     Active Substance: DOXORUBICIN
     Dosage: 25MG/M2, UNK, 1 AND 15 DAY OF 28 DAY CYCLE. (25 MG/M2)
     Route: 042
     Dates: start: 20171108
  23. DOXORUBICIN [Suspect]
     Active Substance: DOXORUBICIN
     Dosage: 25MG/M2, UNK, 1 AND 15 DAY OF 28 DAY CYCLE. (25 MG/M2)
     Route: 042
     Dates: start: 2017
  24. DEXAMETHASONE SALT NOT SPECIFIED [Suspect]
     Active Substance: DEXAMETHASONE
     Dosage: 10 MG, DAY 1 AND 15 OF A 28 DAY CYCLE
     Route: 042
     Dates: start: 20171108
  25. AMOXICILLIN (SALT NOT SPECIFIED) [Suspect]
     Active Substance: AMOXICILLIN
     Indication: ANTIBIOTIC THERAPY
     Dosage: UNK
     Dates: start: 2017
  26. SODIUM CHLORIDE. [Suspect]
     Active Substance: SODIUM CHLORIDE
     Indication: PRODUCT USED FOR UNKNOWN INDICATION
     Dosage: 20 ML VIA SYRINGE WITH BLEOMYCIN, CYCLE DURATION 28 DAYS, TIMING:J1
     Route: 042
     Dates: start: 20171108
  27. SODIUM CHLORIDE. [Suspect]
     Active Substance: SODIUM CHLORIDE
     Dosage: 20 ML VIA SYRINGE WITH BLEOMYCIN, CYCLE DURATION 28 DAYS, TIMING: J15
     Route: 042
  28. GLUCOSE [Suspect]
     Active Substance: DEXTROSE
     Dosage: 5%  250 ML, QCY AS VEHICLE FOR DACARBAZINE; 28 DAY CYCLE VIA SYRINGE; DURATION 5 MINS; CYCLE DURATIO
     Route: 042
     Dates: start: 2017
  29. BLEOMYCIN [Suspect]
     Active Substance: BLEOMYCIN SULFATE
     Indication: HODGKIN^S DISEASE
     Dosage: 10 MG/M2, UNK, 1 AND 15 DAY OF 28 DAY CYCLE
     Route: 042
     Dates: start: 20171108
  30. PREDNISONE. [Suspect]
     Active Substance: PREDNISONE
     Indication: HODGKIN^S DISEASE
     Dosage: 80 MG, QD, FIRST DOSE
     Route: 048
     Dates: start: 2017
  31. GLUCOSE [Suspect]
     Active Substance: DEXTROSE
     Dosage: 5%  20 ML, QCY AS VEHICLE FOR DOXORUBICIN; 28 DAY CYCLE VIA SYRINGE; DURATION 5 MINS; CYCLE DURATION
     Route: 042
     Dates: start: 2017

REACTIONS (3)
  - Contraindicated product administered [Unknown]
  - Preterm premature rupture of membranes [Recovered/Resolved]
  - Exposure during pregnancy [Unknown]
